FAERS Safety Report 4666068-2 (Version None)
Quarter: 2005Q2

REPORT INFORMATION
  Report Type: 
  Country: None (occurrence: None)
  Receive Date: 20050519
  Receipt Date: 20050202
  Transmission Date: 20051028
  Serious: Yes (Other)
  Sender: FDA-Public Use
  Company Number: CA-GLAXOSMITHKLINE-A0543804A

PATIENT
  Age: 56 Year
  Sex: Male
  Weight: 70.5 kg

DRUGS (2)
  1. FLOVENT [Suspect]
     Indication: ASTHMA
     Dosage: 2PUFF TWENTY TIMES PER DAY
     Route: 055
     Dates: start: 19990101
  2. FLOVENT [Suspect]
     Route: 055
     Dates: start: 19990101

REACTIONS (9)
  - CHILLS [None]
  - COUGH [None]
  - DRUG INEFFECTIVE [None]
  - DYSPHAGIA [None]
  - LOWER RESPIRATORY TRACT INFECTION [None]
  - PHARMACEUTICAL PRODUCT COMPLAINT [None]
  - PNEUMONIA [None]
  - PULMONARY CONGESTION [None]
  - SPEECH DISORDER [None]
